FAERS Safety Report 25084250 (Version 1)
Quarter: 2025Q1

REPORT INFORMATION
  Report Type: Spontaneous
  Country: US (occurrence: None)
  Receive Date: 20250316
  Receipt Date: 20250316
  Transmission Date: 20250408
  Serious: Yes (Hospitalization)
  Sender: FDA-CTU
  Company Number: None

PATIENT
  Age: 36 Year
  Sex: Female
  Weight: 85 kg

DRUGS (10)
  1. CYCLOPHOSPHAMIDE [Suspect]
     Active Substance: CYCLOPHOSPHAMIDE
  2. CYCLOPHOSPHAMIDE [Suspect]
     Active Substance: CYCLOPHOSPHAMIDE
     Dates: end: 20250301
  3. CYTARABINE [Suspect]
     Active Substance: CYTARABINE
     Dates: end: 20250228
  4. SPRYCEL [Suspect]
     Active Substance: DASATINIB
     Dates: end: 20250226
  5. DEXAMETHASONE [Suspect]
     Active Substance: DEXAMETHASONE
     Dates: end: 20250301
  6. DOXORUBICIN HYDROCHLORIDE [Suspect]
     Active Substance: DOXORUBICIN HYDROCHLORIDE
     Dates: end: 20250301
  7. MESNA [Concomitant]
     Active Substance: MESNA
     Dates: end: 20250228
  8. METHOTREXATE [Concomitant]
     Active Substance: METHOTREXATE
     Dates: end: 20250218
  9. PONATINIB [Suspect]
     Active Substance: PONATINIB
     Dates: end: 20250301
  10. VINCRISTINE [Suspect]
     Active Substance: VINCRISTINE
     Dates: end: 20250301

REACTIONS (7)
  - Febrile neutropenia [None]
  - Hepatobiliary disease [None]
  - Bacterial translocation [None]
  - Lung opacity [None]
  - Fungal infection [None]
  - Cholecystitis [None]
  - Pleural effusion [None]

NARRATIVE: CASE EVENT DATE: 20250302
